FAERS Safety Report 11604345 (Version 1)
Quarter: 2015Q3

REPORT INFORMATION
  Report Type: Spontaneous
  Country: US (occurrence: US)
  Receive Date: 20150916
  Receipt Date: 20150916
  Transmission Date: 20151125
  Serious: No
  Sender: FDA-Public Use
  Company Number: US-ELI_LILLY_AND_COMPANY-US201405001089

PATIENT
  Sex: Female

DRUGS (2)
  1. HUMALOG MIX75/25 [Suspect]
     Active Substance: INSULIN LISPRO
     Indication: TYPE 2 DIABETES MELLITUS
     Dosage: 4 U, EACH MORNING
     Route: 065
     Dates: start: 2007
  2. NEXIUM [Concomitant]
     Active Substance: ESOMEPRAZOLE MAGNESIUM
     Indication: GASTROOESOPHAGEAL REFLUX DISEASE
     Route: 065

REACTIONS (11)
  - Asthma [Unknown]
  - Sinusitis [Unknown]
  - Diabetic neuropathy [Unknown]
  - Dyspepsia [Unknown]
  - Impaired gastric emptying [Unknown]
  - Angiopathy [Unknown]
  - Medication error [Unknown]
  - Menopause [Unknown]
  - Drug ineffective [Unknown]
  - Nerve injury [Unknown]
  - Hypersensitivity [Unknown]
